FAERS Safety Report 7692527-4 (Version None)
Quarter: 2011Q3

REPORT INFORMATION
  Report Type: 
  Country: None (occurrence: None)
  Receive Date: 20110819
  Receipt Date: 20110811
  Transmission Date: 20111222
  Serious: Yes (Hospitalization)
  Sender: FDA-Public Use
  Company Number: US-MERCK-1106USA02748

PATIENT
  Age: 62 Year
  Sex: Female

DRUGS (8)
  1. HORMONES (UNSPECIFIED) [Concomitant]
     Route: 048
     Dates: start: 19990101, end: 20080101
  2. FOSAMAX [Suspect]
     Route: 048
     Dates: start: 20010201, end: 20101001
  3. FOSAMAX [Suspect]
     Route: 048
     Dates: start: 20010201, end: 20101001
  4. VITAMINS (UNSPECIFIED) [Concomitant]
     Indication: ROUTINE HEALTH MAINTENANCE
     Route: 048
     Dates: start: 19980101
  5. VITAMIN E [Concomitant]
     Indication: ROUTINE HEALTH MAINTENANCE
     Route: 048
  6. FOSAMAX [Suspect]
     Indication: OSTEOPOROSIS
     Route: 048
     Dates: start: 19991201, end: 20010101
  7. FOSAMAX [Suspect]
     Indication: OSTEOPENIA
     Route: 048
     Dates: start: 19991201, end: 20010101
  8. CALCIUM (UNSPECIFIED) AND VITAMIN D (UNSPECIFIED) [Concomitant]
     Route: 048
     Dates: start: 19990101

REACTIONS (28)
  - DEVICE DISLOCATION [None]
  - HYPOAESTHESIA [None]
  - FALL [None]
  - INCISION SITE ERYTHEMA [None]
  - WOUND INFECTION STAPHYLOCOCCAL [None]
  - BALANCE DISORDER [None]
  - TENDONITIS [None]
  - CONCUSSION [None]
  - STAPHYLOCOCCAL INFECTION [None]
  - RHINITIS ALLERGIC [None]
  - GASTROOESOPHAGEAL REFLUX DISEASE [None]
  - HAEMORRHAGIC ANAEMIA [None]
  - PROCEDURAL HYPOTENSION [None]
  - DRUG HYPERSENSITIVITY [None]
  - CELLULITIS [None]
  - FRACTURE DISPLACEMENT [None]
  - MEDICAL DEVICE REMOVAL [None]
  - RECTOCELE [None]
  - ROAD TRAFFIC ACCIDENT [None]
  - PAIN IN EXTREMITY [None]
  - INCISIONAL DRAINAGE [None]
  - FEMUR FRACTURE [None]
  - ANAEMIA POSTOPERATIVE [None]
  - DEVICE FAILURE [None]
  - FRACTURE NONUNION [None]
  - HAEMATOMA [None]
  - ARTHROPATHY [None]
  - BRONCHITIS [None]
